FAERS Safety Report 15980421 (Version 4)
Quarter: 2021Q1

REPORT INFORMATION
  Report Type: Report from Study
  Country: US (occurrence: US)
  Receive Date: 20190219
  Receipt Date: 20210326
  Transmission Date: 20210419
  Serious: Yes (Hospitalization, Other)
  Sender: FDA-Public Use
  Company Number: US-PFIZER INC-2019072906

PATIENT
  Age: 57 Year
  Sex: Female

DRUGS (4)
  1. IBRANCE [Suspect]
     Active Substance: PALBOCICLIB
     Indication: BREAST CANCER FEMALE
     Dosage: 125 MG, CYCLIC (DAILY, 21 DAYS ON/7 DAYS OFF)
     Route: 048
     Dates: start: 2018
  2. FASLODEX [Concomitant]
     Active Substance: FULVESTRANT
     Dosage: UNK, CYCLIC (14 DAYS ON/14 DAYS OFF)
  3. IBRANCE [Suspect]
     Active Substance: PALBOCICLIB
     Dosage: 75 MG, CYCLIC (21 DAYS, THEN 7 DAYS OFF FOR 28 DAY CYCLE)
     Route: 048
     Dates: start: 201805
  4. IBRANCE [Suspect]
     Active Substance: PALBOCICLIB
     Dosage: 75 MG, CYCLIC (DAILY, 14 DAYS ON/14 DAYS OFF/ DAILY TIMES 14 DAYS OFF 14 DAYS ON HOLD)
     Route: 048
     Dates: start: 202012

REACTIONS (15)
  - Back pain [Unknown]
  - Osteoporosis [Unknown]
  - Cancer pain [Not Recovered/Not Resolved]
  - Off label use [Unknown]
  - White blood cell count decreased [Recovering/Resolving]
  - Asthenia [Unknown]
  - Myelosuppression [Unknown]
  - Fatigue [Unknown]
  - Rash [Recovering/Resolving]
  - Arthralgia [Not Recovered/Not Resolved]
  - Arthritis [Unknown]
  - Dry skin [Not Recovered/Not Resolved]
  - Bone pain [Unknown]
  - Pyrexia [Unknown]
  - Muscle spasticity [Unknown]

NARRATIVE: CASE EVENT DATE: 2018
